FAERS Safety Report 18456639 (Version 1)
Quarter: 2020Q4

REPORT INFORMATION
  Report Type: Spontaneous
  Country: US (occurrence: US)
  Receive Date: 20201103
  Receipt Date: 20201103
  Transmission Date: 20210114
  Serious: No
  Sender: FDA-Public Use
  Company Number: US-SUNOVION-2020SUN003220

PATIENT
  Age: 54 Year
  Sex: Male

DRUGS (6)
  1. ALBUTEROL. [Concomitant]
     Active Substance: ALBUTEROL
     Indication: CHRONIC OBSTRUCTIVE PULMONARY DISEASE
     Dosage: UNK, TID
     Route: 055
  2. O2 [Concomitant]
     Active Substance: OXYGEN
     Indication: CHRONIC OBSTRUCTIVE PULMONARY DISEASE
     Dosage: 3.5LPM
  3. LONHALA MAGNAIR [Suspect]
     Active Substance: GLYCOPYRROLATE
     Indication: EMPHYSEMA
  4. ALBUTEROL. [Concomitant]
     Active Substance: ALBUTEROL
     Indication: EMPHYSEMA
  5. O2 [Concomitant]
     Active Substance: OXYGEN
     Indication: EMPHYSEMA
  6. LONHALA MAGNAIR [Suspect]
     Active Substance: GLYCOPYRROLATE
     Indication: CHRONIC OBSTRUCTIVE PULMONARY DISEASE
     Dosage: UNK
     Route: 055
     Dates: end: 20201025

REACTIONS (3)
  - Dyspnoea [Not Recovered/Not Resolved]
  - Therapy cessation [Unknown]
  - Total lung capacity decreased [Not Recovered/Not Resolved]

NARRATIVE: CASE EVENT DATE: 20201025
